FAERS Safety Report 9444543 (Version 1)
Quarter: 2013Q3

REPORT INFORMATION
  Report Type: Spontaneous
  Country: US (occurrence: None)
  Receive Date: 20130805
  Receipt Date: 20130805
  Transmission Date: 20140515
  Serious: Yes (Life-Threatening, Hospitalization)
  Sender: FDA-Public Use
  Company Number: DAV-AE-MTX-13-43

PATIENT
  Age: 67 Year
  Sex: Female
  Weight: 48.5 kg

DRUGS (8)
  1. METHOTREXATE [Suspect]
     Indication: RHEUMATOID ARTHRITIS
     Dosage: 25MG QWEEK, INJECTION
  2. INFLIXIMAB [Concomitant]
  3. HYDROXYCHLOROQUINE [Concomitant]
  4. FOLIC ACID [Concomitant]
  5. LEVOTHYROXINE [Concomitant]
  6. OXYCODONE [Concomitant]
  7. ESTRADIOL [Concomitant]
  8. MEDROXYPROGESTERONE [Concomitant]

REACTIONS (5)
  - Posterior reversible encephalopathy syndrome [None]
  - Coma [None]
  - General physical health deterioration [None]
  - Pulmonary mass [None]
  - Pulmonary cavitation [None]
